FAERS Safety Report 25165544 (Version 2)
Quarter: 2025Q2

REPORT INFORMATION
  Report Type: Spontaneous
  Country: US (occurrence: US)
  Receive Date: 20250407
  Receipt Date: 20250626
  Transmission Date: 20250716
  Serious: Yes (Hospitalization, Other)
  Sender: BRISTOL-MYERS SQUIBB COMPANY
  Company Number: US-BRISTOL-MYERS SQUIBB COMPANY-2025-046745

PATIENT
  Age: 52 Year
  Sex: Male

DRUGS (4)
  1. OPDIVO [Suspect]
     Active Substance: NIVOLUMAB
     Indication: Renal cancer metastatic
     Dates: start: 20241101
  2. OPDIVO [Suspect]
     Active Substance: NIVOLUMAB
     Indication: Metastases to lung
  3. YERVOY [Suspect]
     Active Substance: IPILIMUMAB
     Indication: Renal cancer metastatic
     Dates: start: 20241101
  4. YERVOY [Suspect]
     Active Substance: IPILIMUMAB
     Indication: Metastases to lung

REACTIONS (5)
  - Rash [Unknown]
  - Pneumonitis [Recovering/Resolving]
  - Haemolytic anaemia [Recovered/Resolved]
  - Immune thrombocytopenia [Recovered/Resolved]
  - Pneumonia fungal [Unknown]

NARRATIVE: CASE EVENT DATE: 20241101
